FAERS Safety Report 5411889-1 (Version None)
Quarter: 2007Q3

REPORT INFORMATION
  Report Type: 
  Country: None (occurrence: None)
  Receive Date: 20070813
  Receipt Date: 20070808
  Transmission Date: 20080115
  Serious: Yes (Death)
  Sender: FDA-Public Use
  Company Number: AU-NOVOPROD-266281

PATIENT

DRUGS (2)
  1. NOVOSEVEN [Suspect]
     Indication: HAEMORRHAGE
     Dosage: 4.8 MG,
     Route: 042
  2. NOVOSEVEN [Suspect]
     Dosage: 4.8 UNK, UNK

REACTIONS (1)
  - ATRIAL THROMBOSIS [None]
